FAERS Safety Report 9023908 (Version 1)
Quarter: 2013Q1

REPORT INFORMATION
  Report Type: Spontaneous
  Country: US (occurrence: US)
  Receive Date: 20130121
  Receipt Date: 20130121
  Transmission Date: 20140127
  Serious: No
  Sender: FDA-Public Use
  Company Number: US-PFIZER INC-2011100016

PATIENT
  Age: 79 Year
  Sex: Female
  Weight: 59.86 kg

DRUGS (3)
  1. CELEBREX [Suspect]
     Indication: ARTHRITIS
     Dosage: 200 MG, DAILY
     Route: 048
  2. LOSARTAN [Concomitant]
     Indication: HYPERTENSION
     Dosage: 50 MG, DAILY
  3. HYDROCODONE [Concomitant]
     Indication: PAIN
     Dosage: 125 MG, AS NEEDED

REACTIONS (3)
  - Fall [Unknown]
  - Pain [Unknown]
  - Inflammation [Not Recovered/Not Resolved]
